FAERS Safety Report 21962367 (Version 1)
Quarter: 2023Q1

REPORT INFORMATION
  Report Type: Report from Study
  Country: US (occurrence: US)
  Receive Date: 20230207
  Receipt Date: 20230207
  Transmission Date: 20230418
  Serious: No
  Sender: FDA-Public Use
  Company Number: US-ORG100014127-2022000232

PATIENT
  Age: 73 Year
  Sex: Female

DRUGS (10)
  1. LYSODREN [Suspect]
     Active Substance: MITOTANE
     Indication: Metastases to adrenals
     Dosage: 01 TABLET 04 TIMES DAILY FOR 30 DAYS
     Route: 048
     Dates: start: 20220208, end: 20220212
  2. ACETAMIN TAB 650MG [Concomitant]
     Indication: Product used for unknown indication
  3. ARIPIPRAZOLE TAB 5MG [Concomitant]
     Indication: Product used for unknown indication
  4. BUPROPION TAB 150MG SR [Concomitant]
     Indication: Product used for unknown indication
  5. CARBOPLATIN [Concomitant]
     Active Substance: CARBOPLATIN
     Indication: Product used for unknown indication
  6. DOXORUBICIN [Concomitant]
     Active Substance: DOXORUBICIN
     Indication: Product used for unknown indication
  7. ETOPOSIDE INJ 500/25ML [Concomitant]
     Indication: Product used for unknown indication
  8. GABAPENTIN [Concomitant]
     Active Substance: GABAPENTIN
     Indication: Product used for unknown indication
  9. ACETAMINOPHEN\HYDROCODONE [Concomitant]
     Active Substance: ACETAMINOPHEN\HYDROCODONE
     Indication: Product used for unknown indication
  10. ONDANSETRON TAB 4MG ODT [Concomitant]
     Indication: Product used for unknown indication

REACTIONS (4)
  - Swollen tongue [Recovering/Resolving]
  - Throat tightness [Recovering/Resolving]
  - Muscular weakness [Recovering/Resolving]
  - Confusional state [Recovering/Resolving]

NARRATIVE: CASE EVENT DATE: 20220208
